FAERS Safety Report 13067955 (Version 5)
Quarter: 2017Q2

REPORT INFORMATION
  Report Type: Spontaneous
  Country: JP (occurrence: JP)
  Receive Date: 20161228
  Receipt Date: 20170607
  Transmission Date: 20170830
  Serious: Yes (Hospitalization)
  Sender: FDA-Public Use
  Company Number: PHJP2016JP037599

PATIENT
  Age: 30 Year
  Sex: Male
  Weight: 89.9 kg

DRUGS (5)
  1. MARDOX [Concomitant]
     Indication: PSORIASIS
     Dosage: 2 G, UNK
     Route: 061
     Dates: start: 20160921
  2. COSENTYX [Suspect]
     Active Substance: SECUKINUMAB
     Indication: PSORIASIS
     Dosage: 300 MG, QW
     Route: 058
     Dates: start: 20150409
  3. COSENTYX [Suspect]
     Active Substance: SECUKINUMAB
     Dosage: UNK UNK, QMO
     Route: 058
     Dates: start: 20161121
  4. COSENTYX [Suspect]
     Active Substance: SECUKINUMAB
     Dosage: 300 MG, UNK
     Route: 058
     Dates: start: 20161229
  5. COSENTYX [Suspect]
     Active Substance: SECUKINUMAB
     Dosage: UNK UNK, QMO
     Route: 058
     Dates: start: 20150603

REACTIONS (12)
  - Pyrexia [Recovered/Resolved]
  - Nausea [Unknown]
  - Erythema [Recovering/Resolving]
  - Headache [Unknown]
  - Malaise [Unknown]
  - Pain in extremity [Unknown]
  - Encephalitis [Recovered/Resolved]
  - Intracranial pressure increased [Not Recovered/Not Resolved]
  - Cellulitis [Recovered/Resolved]
  - Encephalopathy [Recovered/Resolved]
  - Meningism [Unknown]
  - Peripheral swelling [Recovering/Resolving]

NARRATIVE: CASE EVENT DATE: 20161219
